FAERS Safety Report 16464168 (Version 1)
Quarter: 2019Q2

REPORT INFORMATION
  Report Type: Spontaneous
  Country: AT (occurrence: AT)
  Receive Date: 20190621
  Receipt Date: 20190621
  Transmission Date: 20190711
  Serious: Yes (Hospitalization, Disabling)
  Sender: FDA-Public Use
  Company Number: AT-EMD SERONO-9065637

PATIENT
  Age: 50 Year
  Sex: Male

DRUGS (2)
  1. RIFAMPICIN [Concomitant]
     Active Substance: RIFAMPIN
     Indication: MYCOBACTERIUM TUBERCULOSIS COMPLEX TEST POSITIVE
     Dates: start: 2018, end: 2018
  2. MAVENCLAD [Suspect]
     Active Substance: CLADRIBINE
     Indication: RELAPSING-REMITTING MULTIPLE SCLEROSIS
     Dosage: FIRST WEEK THERAPY
     Dates: start: 20181219, end: 20181223

REACTIONS (3)
  - Nausea [Not Recovered/Not Resolved]
  - Lymphocyte count decreased [Unknown]
  - Multiple sclerosis relapse [Not Recovered/Not Resolved]

NARRATIVE: CASE EVENT DATE: 201812
